FAERS Safety Report 21071833 (Version 1)
Quarter: 2022Q3

REPORT INFORMATION
  Report Type: Spontaneous
  Country: US (occurrence: US)
  Receive Date: 20220712
  Receipt Date: 20220712
  Transmission Date: 20221027
  Serious: No
  Sender: FDA-Public Use
  Company Number: US-NOVOPROD-909658

PATIENT
  Age: 71 Year
  Sex: Female

DRUGS (2)
  1. RYBELSUS [Suspect]
     Active Substance: SEMAGLUTIDE
     Dosage: 3 MG, QD
     Route: 048
  2. RYBELSUS [Suspect]
     Active Substance: SEMAGLUTIDE
     Indication: Product used for unknown indication
     Dosage: 3 MG, QD
     Route: 048
     Dates: start: 202111

REACTIONS (2)
  - Cough [Not Recovered/Not Resolved]
  - Product prescribing issue [Unknown]
